FAERS Safety Report 5161530-0 (Version None)
Quarter: 2006Q4

REPORT INFORMATION
  Report Type: 
  Country: None (occurrence: None)
  Receive Date: 20061130
  Receipt Date: 20060905
  Transmission Date: 20070319
  Serious: No
  Sender: FDA-Public Use
  Company Number: US-GLAXOSMITHKLINE-A0619062A

PATIENT
  Age: 50 Year
  Sex: Female

DRUGS (2)
  1. WELLBUTRIN XL [Suspect]
     Indication: PANIC ATTACK
     Dosage: 150MG SEE DOSAGE TEXT
     Route: 048
     Dates: start: 20060601
  2. DIOVAN [Concomitant]

REACTIONS (5)
  - AFFECTIVE DISORDER [None]
  - CRYING [None]
  - DECREASED APPETITE [None]
  - NICOTINE DEPENDENCE [None]
  - THERAPEUTIC RESPONSE UNEXPECTED [None]
